FAERS Safety Report 5801155-4 (Version None)
Quarter: 2008Q3

REPORT INFORMATION
  Report Type: 
  Country: None (occurrence: None)
  Receive Date: 20080707
  Receipt Date: 20080626
  Transmission Date: 20090109
  Serious: Yes (Other)
  Sender: FDA-Public Use
  Company Number: PHHY2008VE12400

PATIENT
  Age: 4 Year
  Sex: Male

DRUGS (1)
  1. CATAFLAM [Suspect]

REACTIONS (1)
  - GASTRITIS [None]
